FAERS Safety Report 9562154 (Version 1)
Quarter: 2013Q3

REPORT INFORMATION
  Report Type: Spontaneous
  Country: US (occurrence: US)
  Receive Date: 20130927
  Receipt Date: 20130927
  Transmission Date: 20140515
  Serious: Yes (Other)
  Sender: FDA-Public Use
  Company Number: US-PFIZER INC-2013275702

PATIENT
  Age: 39 Year
  Sex: Female

DRUGS (1)
  1. PHENELZINE SULFATE [Suspect]
     Indication: MAJOR DEPRESSION
     Dosage: 75 MG, 1X/DAY
     Dates: end: 2013

REACTIONS (5)
  - Weight increased [Recovered/Resolved]
  - Contusion [Recovered/Resolved]
  - Psychomotor hyperactivity [Recovered/Resolved]
  - Oedema peripheral [Recovered/Resolved]
  - Localised oedema [Recovered/Resolved]
